FAERS Safety Report 19479919 (Version 2)
Quarter: 2021Q3

REPORT INFORMATION
  Report Type: Report from Study
  Country: US (occurrence: US)
  Receive Date: 20210630
  Receipt Date: 20210802
  Transmission Date: 20211014
  Serious: No
  Sender: FDA-Public Use
  Company Number: US-BIONICAL EMAS-2021ETO000077

PATIENT

DRUGS (1)
  1. ALKINDI SPRINKLE [Suspect]
     Active Substance: HYDROCORTISONE
     Indication: PRODUCT USED FOR UNKNOWN INDICATION
     Dosage: 10 MG (EVERY 8 HOURS), 4 MG (BID) 1 MG (BID)
     Route: 048
     Dates: end: 20210616

REACTIONS (4)
  - Vomiting [Recovered/Resolved]
  - Retching [Recovered/Resolved]
  - Refusal of treatment by patient [Unknown]
  - Product physical issue [Unknown]
